FAERS Safety Report 7529051-5 (Version None)
Quarter: 2011Q2

REPORT INFORMATION
  Report Type: 
  Country: None (occurrence: None)
  Receive Date: 20110520
  Receipt Date: 20110414
  Transmission Date: 20111010
  Serious: No
  Sender: FDA-Public Use
  Company Number: 031629

PATIENT
  Age: 8 Year
  Sex: Male

DRUGS (2)
  1. LACOSAMIDE [Suspect]
     Indication: STATUS EPILEPTICUS
     Dosage: (25 MG BID)
  2. LEVETIRACETAM [Suspect]
     Indication: STATUS EPILEPTICUS

REACTIONS (5)
  - OFF LABEL USE [None]
  - DEPRESSED LEVEL OF CONSCIOUSNESS [None]
  - ENCEPHALOPATHY [None]
  - PLEURAL EFFUSION [None]
  - CONVULSION [None]
